FAERS Safety Report 7724332-4 (Version None)
Quarter: 2011Q3

REPORT INFORMATION
  Report Type: 
  Country: None (occurrence: None)
  Receive Date: 20110901
  Receipt Date: 20110823
  Transmission Date: 20111222
  Serious: Yes (Other)
  Sender: FDA-Public Use
  Company Number: HR-ASTRAZENECA-2011SE50671

PATIENT
  Age: 52 Year
  Sex: Female

DRUGS (6)
  1. NEXIUM [Suspect]
     Indication: OESOPHAGITIS
     Route: 048
     Dates: end: 20101201
  2. VENTER [Concomitant]
     Dosage: THREE TIMES A DAY
     Dates: start: 20110330
  3. NEXIUM [Suspect]
     Indication: REFLUX GASTRITIS
     Route: 048
     Dates: end: 20101201
  4. NEXIUM [Suspect]
     Route: 048
     Dates: start: 20101201, end: 20110330
  5. ASPIRIN [Suspect]
     Route: 048
     Dates: start: 20100701
  6. NEXIUM [Suspect]
     Route: 048
     Dates: start: 20101201, end: 20110330

REACTIONS (3)
  - OESOPHAGITIS [None]
  - DRUG INEFFECTIVE [None]
  - GASTRITIS [None]
